FAERS Safety Report 10247195 (Version 3)
Quarter: 2014Q3

REPORT INFORMATION
  Report Type: Spontaneous
  Country: US (occurrence: US)
  Receive Date: 20140619
  Receipt Date: 20140902
  Transmission Date: 20150326
  Serious: Yes (Hospitalization)
  Sender: FDA-Public Use
  Company Number: US-GLAXOSMITHKLINE-A0873451A

PATIENT
  Age: 84 Year
  Sex: Male

DRUGS (8)
  1. COREG [Suspect]
     Active Substance: CARVEDILOL
     Indication: CARDIAC ASSISTANCE DEVICE USER
     Dosage: 25MG TWICE PER DAY
     Route: 048
     Dates: start: 2010
  2. ALPHAGAN P [Concomitant]
     Active Substance: BRIMONIDINE TARTRATE
  3. CARVEDILOL. [Suspect]
     Active Substance: CARVEDILOL
     Indication: CARDIAC ASSISTANCE DEVICE USER
     Dosage: 6.25MG THREE TIMES PER DAY
     Route: 048
     Dates: start: 20100617
  4. ZOCOR [Concomitant]
     Active Substance: SIMVASTATIN
  5. NEXIUM [Concomitant]
     Active Substance: ESOMEPRAZOLE MAGNESIUM
  6. DIAVAN [Concomitant]
     Active Substance: ASCORBIC ACID/ CHROMIUM/ SELENIUM/VANADYL SULFATE
  7. XALATAN [Concomitant]
     Active Substance: LATANOPROST
  8. HUMULIN INSULIN [Concomitant]
     Active Substance: INSULIN HUMAN

REACTIONS (6)
  - Pneumonia [Unknown]
  - Cardiac failure congestive [Unknown]
  - Cough [Unknown]
  - Fatigue [Unknown]
  - Joint swelling [Unknown]
  - Blood sodium decreased [Unknown]

NARRATIVE: CASE EVENT DATE: 201006
